FAERS Safety Report 6928232-9 (Version None)
Quarter: 2010Q3

REPORT INFORMATION
  Report Type: 
  Country: None (occurrence: None)
  Receive Date: 20100817
  Receipt Date: 20100804
  Transmission Date: 20110219
  Serious: Yes (Death)
  Sender: FDA-Public Use
  Company Number: DE-ROCHE-719803

PATIENT
  Age: 80 Year
  Sex: Female

DRUGS (1)
  1. TOCILIZUMAB [Suspect]
     Indication: RHEUMATOID ARTHRITIS
     Dosage: FORM: INFUSION, DOSE: 8.2 MG/KG
     Route: 065
     Dates: start: 20070501, end: 20091001

REACTIONS (3)
  - INTESTINAL PERFORATION [None]
  - MULTI-ORGAN FAILURE [None]
  - SEPSIS [None]
